FAERS Safety Report 9663858 (Version 2)
Quarter: 2013Q4

REPORT INFORMATION
  Report Type: Spontaneous
  Country: US (occurrence: US)
  Receive Date: 20131101
  Receipt Date: 20131101
  Transmission Date: 20140711
  Serious: Yes (Other)
  Sender: FDA-Public Use
  Company Number: US-SA-2013-06918

PATIENT
  Age: 37 Year
  Sex: Female

DRUGS (1)
  1. TUBERCULIN PPD(M) 5 TU [Suspect]
     Indication: TUBERCULIN TEST
     Dosage: DAILY DOSE TEXT : NOT REPORTED
     Route: 023
     Dates: start: 20130611, end: 20130611

REACTIONS (2)
  - Rash generalised [Recovered/Resolved]
  - Pruritus [Recovered/Resolved]
